FAERS Safety Report 14413544 (Version 1)
Quarter: 2018Q1

REPORT INFORMATION
  Report Type: Spontaneous
  Country: US (occurrence: US)
  Receive Date: 20180118
  Receipt Date: 20180118
  Transmission Date: 20180509
  Serious: Yes (Other)
  Sender: FDA-Public Use
  Company Number: None

PATIENT
  Age: 22 Year
  Sex: Male
  Weight: 74.25 kg

DRUGS (1)
  1. YES TO TOMATOES DETOXIFYING CHARCOAL CLEANSER [Suspect]
     Active Substance: SALICYLIC ACID
     Indication: THERAPEUTIC SKIN CARE TOPICAL
     Dosage: ?          QUANTITY:1 PATCH(ES);OTHER FREQUENCY:ONCE;?
     Route: 061
     Dates: start: 20180115, end: 20180115

REACTIONS (1)
  - Application site exfoliation [None]

NARRATIVE: CASE EVENT DATE: 20180115
